FAERS Safety Report 8351610-0 (Version None)
Quarter: 2012Q2

REPORT INFORMATION
  Report Type: 
  Country: None (occurrence: None)
  Receive Date: 20120511
  Receipt Date: 20120501
  Transmission Date: 20120825
  Serious: No
  Sender: FDA-Public Use
  Company Number: US-BIOGENIDEC-2011BI047531

PATIENT
  Age: 41 Year
  Sex: Female

DRUGS (1)
  1. TYSABRI [Suspect]
     Indication: MULTIPLE SCLEROSIS
     Route: 042
     Dates: start: 20111011

REACTIONS (15)
  - DYSMENORRHOEA [None]
  - BODY TEMPERATURE DECREASED [None]
  - MEMORY IMPAIRMENT [None]
  - CONFUSIONAL STATE [None]
  - POOR VENOUS ACCESS [None]
  - OEDEMA PERIPHERAL [None]
  - BODY TEMPERATURE INCREASED [None]
  - WHITE BLOOD CELL COUNT DECREASED [None]
  - HORMONE LEVEL ABNORMAL [None]
  - VOMITING [None]
  - HYPERSENSITIVITY [None]
  - DYSPNOEA [None]
  - PRURITUS [None]
  - WEIGHT DECREASED [None]
  - POLYMENORRHOEA [None]
